FAERS Safety Report 14018059 (Version 3)
Quarter: 2018Q4

REPORT INFORMATION
  Report Type: Report from Study
  Country: JP (occurrence: JP)
  Receive Date: 20170928
  Receipt Date: 20181102
  Transmission Date: 20190204
  Serious: Yes (Other)
  Sender: FDA-Public Use
  Company Number: JP-ALXN-A201710486AA

PATIENT
  Age: 78 Year
  Sex: Female

DRUGS (7)
  1. SOLIRIS [Suspect]
     Active Substance: ECULIZUMAB
     Dosage: 900 MG, Q2W
     Route: 042
     Dates: start: 20171101
  2. NIFEDIPINE. [Concomitant]
     Active Substance: NIFEDIPINE
     Indication: HYPERTENSION
     Dosage: 40 MG, BID
     Route: 048
     Dates: start: 20170525, end: 20170810
  3. PREDNISOLONE. [Concomitant]
     Active Substance: PREDNISOLONE
     Indication: THROMBOTIC MICROANGIOPATHY
     Dosage: 30 MG, QD
     Route: 048
     Dates: start: 20170602
  4. NIFEDIPINE. [Concomitant]
     Active Substance: NIFEDIPINE
     Dosage: 20 MG, BID
     Route: 048
     Dates: start: 20170811, end: 20171114
  5. NIFEDIPINE. [Concomitant]
     Active Substance: NIFEDIPINE
     Dosage: 20 MG IN THE MORNING, 40 MG IN THE EVENING
     Route: 048
     Dates: start: 20171115
  6. SOLIRIS [Suspect]
     Active Substance: ECULIZUMAB
     Dosage: 1200 MG, Q2W
     Route: 042
     Dates: start: 20170810, end: 20171018
  7. SOLIRIS [Suspect]
     Active Substance: ECULIZUMAB
     Indication: ATYPICAL HAEMOLYTIC URAEMIC SYNDROME
     Dosage: 900 MG, QW
     Route: 042
     Dates: start: 20170713, end: 20170803

REACTIONS (3)
  - Intentional product use issue [Unknown]
  - Hallucination [Recovered/Resolved]
  - Dementia [Recovered/Resolved]

NARRATIVE: CASE EVENT DATE: 201708
